FAERS Safety Report 8475493 (Version 4)
Quarter: 2012Q4

REPORT INFORMATION
  Report Type: Report from Study
  Country: US (occurrence: US)
  Receive Date: 20120326
  Receipt Date: 20121115
  Transmission Date: 20130627
  Serious: Yes (Hospitalization, Disabling)
  Sender: FDA-Public Use
  Company Number: US-JNJFOC-20120311518

PATIENT
  Age: 16 Year
  Sex: Female
  Weight: 46 kg

DRUGS (16)
  1. REMICADE [Suspect]
     Indication: CROHN^S DISEASE
     Route: 042
     Dates: start: 20041224, end: 20060606
  2. HUMIRA [Concomitant]
     Dates: start: 20080906, end: 20120204
  3. CLOTRIMAZOLE [Concomitant]
     Route: 061
  4. LOTRISONE [Concomitant]
  5. DIFLUCAN [Concomitant]
  6. NYSTATIN [Concomitant]
  7. IRON [Concomitant]
  8. ACETAMINOPHEN [Concomitant]
  9. LOVENOX [Concomitant]
  10. PEPCID [Concomitant]
  11. LIDOCAINE [Concomitant]
  12. HYDROMORPHONE [Concomitant]
  13. MIDAZOLAM [Concomitant]
  14. MORPHINE [Concomitant]
  15. FERROUS SULFATE [Concomitant]
  16. FOLIC ACID [Concomitant]

REACTIONS (2)
  - Crohn^s disease [Recovered/Resolved]
  - Postoperative wound infection [Recovered/Resolved with Sequelae]
